FAERS Safety Report 5395718-0 (Version None)
Quarter: 2007Q3

REPORT INFORMATION
  Report Type: 
  Country: None (occurrence: None)
  Receive Date: 20070718
  Receipt Date: 20070515
  Transmission Date: 20080115
  Serious: Yes (Other)
  Sender: FDA-Public Use
  Company Number: 2006130556

PATIENT
  Age: 62 Year
  Sex: Male
  Weight: 79.4 kg

DRUGS (1)
  1. CELEBREX [Suspect]
     Indication: ANTIINFLAMMATORY THERAPY
     Dates: start: 20001010, end: 20050405

REACTIONS (1)
  - CEREBROVASCULAR ACCIDENT [None]
